FAERS Safety Report 9639067 (Version 3)
Quarter: 2014Q2

REPORT INFORMATION
  Report Type: Report from Study
  Country: US (occurrence: US)
  Receive Date: 20131022
  Receipt Date: 20140430
  Transmission Date: 20141212
  Serious: Yes (Hospitalization)
  Sender: FDA-Public Use
  Company Number: US-US-EMD SERONO, INC.-7244074

PATIENT
  Age: 61 Year
  Sex: Male

DRUGS (3)
  1. REBIF [Suspect]
     Indication: MULTIPLE SCLEROSIS
     Route: 058
     Dates: start: 20130612
  2. REBIF [Suspect]
     Route: 058
  3. IBUPROFEN [Concomitant]
     Indication: PREMEDICATION

REACTIONS (5)
  - Blood glucose increased [Recovering/Resolving]
  - White blood cell count increased [Recovering/Resolving]
  - Renal impairment [Recovering/Resolving]
  - Limb discomfort [Unknown]
  - Multiple sclerosis relapse [Unknown]
